FAERS Safety Report 6935711-7 (Version None)
Quarter: 2010Q3

REPORT INFORMATION
  Report Type: 
  Country: None (occurrence: None)
  Receive Date: 20100823
  Receipt Date: 20100816
  Transmission Date: 20110219
  Serious: Yes (Other)
  Sender: FDA-Public Use
  Company Number: US-ASTRAZENECA-2007UW13914

PATIENT
  Age: 44 Year
  Sex: Male
  Weight: 106.6 kg

DRUGS (22)
  1. SEROQUEL [Suspect]
     Indication: SLEEP DISORDER
     Route: 048
     Dates: start: 19980101
  2. SEROQUEL [Suspect]
     Indication: DEPRESSION
     Route: 048
     Dates: start: 19980101
  3. SEROQUEL [Suspect]
     Dosage: 25 TO 300 MG AT NIGHT
     Route: 048
     Dates: start: 19991102
  4. SEROQUEL [Suspect]
     Dosage: 25 TO 300 MG AT NIGHT
     Route: 048
     Dates: start: 19991102
  5. ZYPREXA [Concomitant]
     Indication: DEPRESSION
     Dates: end: 20040101
  6. RISPERDAL [Concomitant]
  7. GEODON [Concomitant]
  8. LEXAPRO [Concomitant]
     Dosage: 10 TO 25 MG AT NIGHT
     Route: 048
     Dates: start: 19991102
  9. XANAX [Concomitant]
     Route: 048
     Dates: start: 19981205
  10. XANAX [Concomitant]
  11. TOPAMAX [Concomitant]
  12. GLUCOTROL XL [Concomitant]
     Route: 048
     Dates: start: 20070803
  13. BYETTA [Concomitant]
     Dosage: 5 TO 10 MCG
     Route: 048
     Dates: start: 20070209
  14. LANTUS [Concomitant]
     Dosage: 100 UNITS/ML TOTAL DAILY UNITS 65
     Route: 058
     Dates: start: 20070209
  15. LYRICA [Concomitant]
     Dosage: 30 TO 150 MG TWO TIMES DAILY
     Route: 048
     Dates: start: 20061215
  16. METFORMIN HCL [Concomitant]
     Dosage: 500 TO 1000 MG
     Route: 048
  17. LIPITOR [Concomitant]
     Indication: DYSLIPIDAEMIA
     Dosage: 30 TO 40 MG AT NIGHT
     Route: 048
     Dates: start: 20060615
  18. HUMALOG [Concomitant]
     Dosage: 100 UNITS/ML TOTAL DAILY UNITS 32
     Route: 058
  19. AMARYL [Concomitant]
     Indication: NEUROPATHY PERIPHERAL
     Route: 048
     Dates: start: 20001211, end: 20050429
  20. ASPIRIN [Concomitant]
     Route: 048
     Dates: start: 20070209
  21. ZOCOR [Concomitant]
     Route: 048
     Dates: start: 20080118
  22. VALPROIC ACID [Concomitant]

REACTIONS (17)
  - BLOOD CHOLESTEROL INCREASED [None]
  - BLOOD TRIGLYCERIDES INCREASED [None]
  - BONE DISORDER [None]
  - DIABETES MELLITUS [None]
  - DIABETES MELLITUS INADEQUATE CONTROL [None]
  - DIABETIC KETOACIDOSIS [None]
  - FISTULA [None]
  - GLYCOSURIA [None]
  - HYPERGLYCAEMIA [None]
  - HYPERLIPIDAEMIA [None]
  - NEUROLEPTIC MALIGNANT SYNDROME [None]
  - NEUROPATHY PERIPHERAL [None]
  - OBESITY [None]
  - PILONIDAL CYST [None]
  - TOOTH LOSS [None]
  - TYPE 2 DIABETES MELLITUS [None]
  - VISUAL IMPAIRMENT [None]
